FAERS Safety Report 11622280 (Version 1)
Quarter: 2015Q4

REPORT INFORMATION
  Report Type: Spontaneous
  Country: US (occurrence: US)
  Receive Date: 20151013
  Receipt Date: 20151013
  Transmission Date: 20160304
  Serious: No
  Sender: FDA-Public Use
  Company Number: US-JNJFOC-20141212964

PATIENT
  Age: 87 Year
  Sex: Male
  Weight: 87.09 kg

DRUGS (1)
  1. TYLENOL EXTRA STRENGTH [Suspect]
     Active Substance: ACETAMINOPHEN
     Indication: ARTHRALGIA
     Dosage: 2-3 TIMES PER DAY. THE PATIENT HAS BEEN USING THE PRODUCT FOR A LONG TIME
     Route: 048

REACTIONS (1)
  - Inappropriate schedule of drug administration [Unknown]
